FAERS Safety Report 5664432-6 (Version None)
Quarter: 2008Q1

REPORT INFORMATION
  Report Type: 
  Country: None (occurrence: None)
  Receive Date: 20080314
  Receipt Date: 20080304
  Transmission Date: 20080703
  Serious: Yes (Hospitalization)
  Sender: FDA-Public Use
  Company Number: US-ABBOTT-08P-163-0441564-00

PATIENT
  Age: 52 Year
  Sex: Female

DRUGS (17)
  1. WARFARIN SODIUM [Suspect]
     Indication: DRUG USE FOR UNKNOWN INDICATION
  2. WARFARIN SODIUM [Suspect]
     Dosage: 4 MG, ALTERNATING WITH 6 MG
  3. WARFARIN SODIUM [Suspect]
  4. WARFARIN SODIUM [Suspect]
     Dosage: M AND F: 6 MG, AND 4 MG THE OTHER DAYS
  5. WARFARIN SODIUM [Suspect]
  6. WARFARIN SODIUM [Suspect]
     Dosage: 4 MG ALTERNATING WITH 5 MG
  7. WARFARIN SODIUM [Suspect]
  8. WARFARIN SODIUM [Suspect]
     Dosage: 1.5 MG WED, 3 MG ALL THE REST
  9. AMIODARONE HCL [Interacting]
     Indication: DRUG USE FOR UNKNOWN INDICATION
  10. AMIODARONE HCL [Interacting]
  11. NAFCILLIN SODIUM [Suspect]
     Indication: ENDOCARDITIS
     Route: 042
  12. VANCOMYCIN [Concomitant]
     Indication: ENDOCARDITIS
     Dosage: NOT REPORTED
  13. METOPROLOL TARTRATE [Concomitant]
     Indication: DRUG USE FOR UNKNOWN INDICATION
  14. ASPIRIN [Concomitant]
     Indication: DRUG USE FOR UNKNOWN INDICATION
  15. FOLIC ACID [Concomitant]
     Indication: DRUG USE FOR UNKNOWN INDICATION
  16. FERROUS SULFATE TAB [Concomitant]
     Indication: DRUG USE FOR UNKNOWN INDICATION
  17. VITAMIN CAP [Concomitant]
     Indication: DRUG USE FOR UNKNOWN INDICATION

REACTIONS (2)
  - DRUG INTERACTION [None]
  - INTERNATIONAL NORMALISED RATIO INCREASED [None]
